FAERS Safety Report 11919643 (Version 3)
Quarter: 2016Q1

REPORT INFORMATION
  Report Type: Spontaneous
  Country: US (occurrence: US)
  Receive Date: 20160115
  Receipt Date: 20160223
  Transmission Date: 20160526
  Serious: No
  Sender: FDA-Public Use
  Company Number: US-PFIZER INC-2016012269

PATIENT
  Age: 68 Year
  Sex: Female

DRUGS (32)
  1. ALLOPURINOL. [Concomitant]
     Active Substance: ALLOPURINOL
     Dosage: 300 MG, 1X/DAY(EVERY NIGHT)
  2. DILTIAZEM HCL [Concomitant]
     Active Substance: DILTIAZEM HYDROCHLORIDE
     Dosage: 120 MG, DAILY
  3. FUROSEMIDE. [Concomitant]
     Active Substance: FUROSEMIDE
     Dosage: 40 MG, DAILY (1 ? TABS Q 2 A.M)
     Dates: start: 20151001
  4. METOLAZONE. [Concomitant]
     Active Substance: METOLAZONE
     Dosage: 2.5 MG, DAILY
  5. NTG [Concomitant]
     Active Substance: NITROGLYCERIN
     Indication: CHEST PAIN
     Dosage: 0.4 MG, AS NEEDED
     Route: 060
  6. WARFARIN [Concomitant]
     Active Substance: WARFARIN
     Dosage: 4 MG, UNK (AS DIRECTED)
  7. OSCAL D [Concomitant]
     Active Substance: CALCIUM CARBONATE\CHOLECALCIFEROL
     Dosage: UNK, DAILY
  8. NOVOLOG [Concomitant]
     Active Substance: INSULIN ASPART
     Dosage: PER 5/5 WITH BS CHECKED 4-5 TIMES DAILY
  9. INSULIN [Concomitant]
     Active Substance: INSULIN NOS
     Dosage: UNK (1/2TH 31GM 8 MM; USE WITH INSULIN INJ.)
  10. BIOTIN [Concomitant]
     Active Substance: BIOTIN
     Dosage: 10000 UG, 2X/DAY
  11. LYRICA [Suspect]
     Active Substance: PREGABALIN
     Indication: NEURALGIA
     Dosage: 150 MG, 2X/DAY
     Route: 048
     Dates: start: 2009
  12. DIGOXIN. [Concomitant]
     Active Substance: DIGOXIN
     Dosage: 0.125 MG, DAILY (? TAB DAILY)
  13. MAG OXIDE [Concomitant]
     Active Substance: MAGNESIUM OXIDE
     Dosage: 400 MG, 2X/DAY
  14. OMEPRAZOLE. [Concomitant]
     Active Substance: OMEPRAZOLE
     Dosage: 40 MG, DAILY (A.M.)
  15. OXYGEN. [Concomitant]
     Active Substance: OXYGEN
     Dosage: UNK, AS NEEDED (2-3 LM; HS + PRN)
  16. WARFARIN [Concomitant]
     Active Substance: WARFARIN
     Dosage: 2 MG, UNK (AS DIRECTED)
  17. VITAMIN D3 [Concomitant]
     Active Substance: CHOLECALCIFEROL
     Dosage: 1000 IU, DAILY
  18. O2 [Concomitant]
     Dosage: UNK UNK,(O2; DOSE: 2- 3LM HS ) AS NEEDED
  19. LYRICA [Suspect]
     Active Substance: PREGABALIN
     Indication: DIABETIC NEUROPATHY
  20. ISOSORBIDE MONO [Concomitant]
     Dosage: 60 MG, 2X/DAY
  21. ASA [Concomitant]
     Active Substance: ASPIRIN
     Dosage: 81 MG, DAILY
  22. SENOKOT [Concomitant]
     Active Substance: SENNOSIDES
     Dosage: 17.2 MG, DAILY
  23. ISOSORBIDE ER [Concomitant]
     Dosage: 100 MG, DAILY
  24. FUROSEMIDE. [Concomitant]
     Active Substance: FUROSEMIDE
     Dosage: 80 MG, 1X/DAY (2 TABS EVERY MORNING)
  25. FUROSEMIDE. [Concomitant]
     Active Substance: FUROSEMIDE
     Dosage: 60 MG, 1X/DAY (40 MG; SPECIAL INSTRUCTIONS: 1.5 TAB AT 2 PM)
     Dates: start: 20151001
  26. LANTUS [Concomitant]
     Active Substance: INSULIN GLARGINE
     Dosage: UNK, DAILY (30-50 U)
  27. LISINOPRIL. [Concomitant]
     Active Substance: LISINOPRIL
     Dosage: 2.5 MG, DAILY
  28. OXYCODONE [Concomitant]
     Active Substance: OXYCODONE
     Dosage: 10 MG, AS NEEDED (1 EVERY 6 HRS)
  29. ALBUTEROL. [Concomitant]
     Active Substance: ALBUTEROL
     Dosage: 0.83 %, 4X/DAY (EVERY 6 HRS) NEBULIZER RX QID +PRN
  30. METOPROLOL. [Concomitant]
     Active Substance: METOPROLOL
     Dosage: 25 MG, 2X/DAY
  31. ONGLYZA [Concomitant]
     Active Substance: SAXAGLIPTIN HYDROCHLORIDE
     Dosage: 5 MG, DAILY (AM)
  32. CLARITIN [Concomitant]
     Active Substance: LORATADINE
     Dosage: 10 MG, AS NEEDED (1 TO 2 DAILY)

REACTIONS (1)
  - Hypoacusis [Recovered/Resolved]
